FAERS Safety Report 24355753 (Version 1)
Quarter: 2024Q3

REPORT INFORMATION
  Report Type: Spontaneous
  Country: US (occurrence: US)
  Receive Date: 20240924
  Receipt Date: 20240924
  Transmission Date: 20241017
  Serious: No
  Sender: CIPLA
  Company Number: US-CIPLA LTD.-2024US02471

PATIENT

DRUGS (4)
  1. DICLOFENAC [Suspect]
     Active Substance: DICLOFENAC
     Indication: Back pain
     Dosage: UNK
     Route: 061
     Dates: start: 2021
  2. DICLOFENAC [Suspect]
     Active Substance: DICLOFENAC
     Indication: Musculoskeletal stiffness
  3. DICLOFENAC [Suspect]
     Active Substance: DICLOFENAC
     Indication: Arthralgia
  4. DICLOFENAC [Suspect]
     Active Substance: DICLOFENAC
     Indication: Myalgia

REACTIONS (3)
  - Therapeutic product effective for unapproved indication [Unknown]
  - Off label use [Unknown]
  - Product container issue [Unknown]

NARRATIVE: CASE EVENT DATE: 20210101
